FAERS Safety Report 5563352-5 (Version None)
Quarter: 2007Q4

REPORT INFORMATION
  Report Type: 
  Country: None (occurrence: None)
  Receive Date: 20071217
  Receipt Date: 20071211
  Transmission Date: 20080405
  Serious: Yes (Other)
  Sender: FDA-Public Use
  Company Number: PHBS2007AT20794

PATIENT
  Age: 82 Year
  Sex: Male

DRUGS (4)
  1. LESCOL MR [Suspect]
     Dosage: 80 MG, ONCE/SINGLE
     Route: 048
  2. ANTIHYPERTENSIVES [Concomitant]
  3. THROMBO ASS [Concomitant]
  4. ANTI-PARKINSON AGENTS [Concomitant]

REACTIONS (6)
  - ABNORMAL BEHAVIOUR [None]
  - ACCIDENTAL EXPOSURE [None]
  - CEREBROVASCULAR ACCIDENT [None]
  - DISORIENTATION [None]
  - MOTOR DYSFUNCTION [None]
  - SOMNOLENCE [None]
